FAERS Safety Report 17368866 (Version 1)
Quarter: 2020Q1

REPORT INFORMATION
  Report Type: Spontaneous
  Country: CO (occurrence: CO)
  Receive Date: 20200204
  Receipt Date: 20200204
  Transmission Date: 20200409
  Serious: Yes (Hospitalization)
  Sender: FDA-Public Use
  Company Number: CO-BIOMARINAP-CO-2020-128298

PATIENT
  Age: 11 Year
  Sex: Male

DRUGS (1)
  1. VIMIZIM [Suspect]
     Active Substance: ELOSULFASE ALFA
     Indication: MUCOPOLYSACCHARIDOSIS IV
     Dosage: 35 MILLIGRAM
     Route: 065
     Dates: start: 20170927

REACTIONS (1)
  - Knee deformity [Recovering/Resolving]

NARRATIVE: CASE EVENT DATE: 20200130
